FAERS Safety Report 16558322 (Version 1)
Quarter: 2019Q3

REPORT INFORMATION
  Report Type: Spontaneous
  Country: US (occurrence: US)
  Receive Date: 20190530
  Receipt Date: 20190530
  Transmission Date: 20191004
  Serious: No
  Sender: FDA-Public Use
  Company Number: None

PATIENT

DRUGS (5)
  1. DICLOFENAC SODIUM. [Suspect]
     Active Substance: DICLOFENAC SODIUM
     Route: 061
  2. PREDNISONE. [Suspect]
     Active Substance: PREDNISONE
  3. BENAZEPRIL HYDROCHLORIDE AND HYDROCHLOROTHIAZIDE [Suspect]
     Active Substance: BENAZEPRIL HYDROCHLORIDE\HYDROCHLOROTHIAZIDE
  4. CITALOPRAM HYDROBROMIDE. [Suspect]
     Active Substance: CITALOPRAM HYDROBROMIDE
  5. DONEPEZIL. [Suspect]
     Active Substance: DONEPEZIL

REACTIONS (2)
  - Drug dispensed to wrong patient [None]
  - Wrong product administered [None]
